FAERS Safety Report 7068463-3 (Version None)
Quarter: 2010Q4

REPORT INFORMATION
  Report Type: 
  Country: None (occurrence: None)
  Receive Date: 20101027
  Receipt Date: 20101027
  Transmission Date: 20110411
  Serious: Yes (Hospitalization)
  Sender: FDA-Public Use
  Company Number: None

PATIENT
  Age: 17 Month
  Sex: Female
  Weight: 11.3399 kg

DRUGS (2)
  1. HYLAND'S TEETHING TABLETS [Suspect]
     Indication: TEETHING
     Dosage: 2 TO 3 TABLETS AS NEEDED PO
     Route: 048
  2. HYLAND'S TEETING TABLETS [Suspect]
     Indication: TEETHING
     Dosage: 2 TO 3 TABLETS AS NEEDED PO

REACTIONS (1)
  - FEBRILE CONVULSION [None]
